FAERS Safety Report 15627157 (Version 1)
Quarter: 2018Q4

REPORT INFORMATION
  Report Type: Spontaneous
  Country: CH (occurrence: CH)
  Receive Date: 20181116
  Receipt Date: 20181116
  Transmission Date: 20190205
  Serious: Yes (Hospitalization)
  Sender: FDA-Public Use
  Company Number: CH-JNJFOC-20181113633

PATIENT
  Age: 43 Year
  Sex: Female

DRUGS (11)
  1. ALGIFOR [Concomitant]
     Active Substance: IBUPROFEN
     Route: 065
  2. BIOTIN [Concomitant]
     Active Substance: BIOTIN
     Route: 065
  3. REMICADE [Suspect]
     Active Substance: INFLIXIMAB
     Indication: ANKYLOSING SPONDYLITIS
     Dosage: 2 X 400 ML
     Route: 042
     Dates: start: 2012
  4. FLUCTINE [Concomitant]
     Active Substance: FLUOXETINE HYDROCHLORIDE
     Route: 065
  5. SULFASALAZINE. [Suspect]
     Active Substance: SULFASALAZINE
     Indication: HIDRADENITIS
     Route: 065
     Dates: start: 201809
  6. ZANIPRESS [Concomitant]
     Active Substance: ENALAPRIL MALEATE\LERCANIDIPINE HYDROCHLORIDE
     Route: 065
  7. SULFASALAZINE. [Suspect]
     Active Substance: SULFASALAZINE
     Indication: ANKYLOSING SPONDYLITIS
     Route: 065
     Dates: start: 201809
  8. DEMETRIN [Concomitant]
     Active Substance: PRAZEPAM
     Route: 065
  9. MEFENACID [Concomitant]
     Active Substance: MEFENAMIC ACID
     Route: 065
  10. DAFLON [Concomitant]
     Route: 065
  11. REMICADE [Suspect]
     Active Substance: INFLIXIMAB
     Indication: HIDRADENITIS
     Dosage: 2 X 400 ML
     Route: 042
     Dates: start: 2012

REACTIONS (1)
  - Meningitis aseptic [Recovering/Resolving]

NARRATIVE: CASE EVENT DATE: 20181005
